FAERS Safety Report 16480421 (Version 2)
Quarter: 2020Q1

REPORT INFORMATION
  Report Type: Spontaneous
  Country: CA (occurrence: CA)
  Receive Date: 20190626
  Receipt Date: 20200229
  Transmission Date: 20200409
  Serious: Yes (Hospitalization, Other)
  Sender: FDA-Public Use
  Company Number: CA-SAMSUNG BIOEPIS-SB-2019-16124

PATIENT
  Age: 70 Year
  Sex: Female
  Weight: 58 kg

DRUGS (8)
  1. ELIQUIS [Suspect]
     Active Substance: APIXABAN
     Indication: PRODUCT USED FOR UNKNOWN INDICATION
     Route: 065
  2. PREDNISONE. [Concomitant]
     Active Substance: PREDNISONE
     Indication: PRODUCT USED FOR UNKNOWN INDICATION
     Dosage: UNKNOWN
     Route: 065
  3. CALCIUM [Concomitant]
     Active Substance: CALCIUM
     Indication: PROPHYLAXIS
     Dosage: UNKNOWN
     Route: 065
  4. FERROUS FUMARATE [Concomitant]
     Active Substance: FERROUS FUMARATE
     Indication: PRODUCT USED FOR UNKNOWN INDICATION
     Route: 048
  5. MEFENAMIC ACID. [Suspect]
     Active Substance: MEFENAMIC ACID
     Indication: PAIN
     Dosage: UNKNOWN
     Route: 065
  6. REMICADE [Concomitant]
     Active Substance: INFLIXIMAB
     Indication: PRODUCT USED FOR UNKNOWN INDICATION
     Dosage: UNKNOWN. POWDER FOR SOLUTION INTRAVENOUS
     Route: 042
  7. FRAGMIN [Suspect]
     Active Substance: DALTEPARIN SODIUM
     Indication: PRODUCT USED FOR UNKNOWN INDICATION
     Dosage: SOLUTION INTRAVENOUS
     Route: 058
  8. INFLIXIMAB [Suspect]
     Active Substance: INFLIXIMAB
     Indication: COLITIS ULCERATIVE
     Route: 042

REACTIONS (28)
  - Dysuria [Unknown]
  - Mobility decreased [Unknown]
  - Pain in extremity [Unknown]
  - Uterine leiomyoma [Unknown]
  - Blood albumin decreased [Unknown]
  - Chest pain [Unknown]
  - Deep vein thrombosis [Unknown]
  - Neutrophil count increased [Unknown]
  - Swelling [Unknown]
  - International normalised ratio increased [Unknown]
  - Off label use [Recovering/Resolving]
  - Heart rate increased [Unknown]
  - Oedema peripheral [Unknown]
  - Dyspnoea exertional [Unknown]
  - Abdominal pain [Unknown]
  - Asthenia [Unknown]
  - Compression fracture [Unknown]
  - Haemorrhage [Unknown]
  - Hepatic steatosis [Unknown]
  - Intentional product use issue [Unknown]
  - Dyspnoea [Unknown]
  - Hiatus hernia [Unknown]
  - Infrequent bowel movements [Unknown]
  - Rectal haemorrhage [Unknown]
  - Blood creatinine increased [Unknown]
  - C-reactive protein increased [Unknown]
  - Platelet count increased [Unknown]
  - Therapeutic product effect incomplete [Unknown]
